FAERS Safety Report 4513951-4 (Version None)
Quarter: 2004Q4

REPORT INFORMATION
  Report Type: 
  Country: None (occurrence: None)
  Receive Date: 20041130
  Receipt Date: 20041006
  Transmission Date: 20050328
  Serious: No
  Sender: FDA-Public Use
  Company Number: US-GLAXOSMITHKLINE-A0528802A

PATIENT
  Age: 79 Year
  Sex: Male

DRUGS (6)
  1. WELLBUTRIN XL [Suspect]
     Indication: DEPRESSION
     Dosage: 150MG PER DAY
     Route: 048
     Dates: start: 20040915, end: 20040922
  2. COUMADIN [Concomitant]
  3. TAMBOCOR [Concomitant]
  4. IMURAN [Concomitant]
  5. AVAPRO [Concomitant]
  6. CARDURA [Concomitant]

REACTIONS (2)
  - GASTROINTESTINAL PAIN [None]
  - NAUSEA [None]
